FAERS Safety Report 5683094-5 (Version None)
Quarter: 2008Q1

REPORT INFORMATION
  Report Type: 
  Country: None (occurrence: None)
  Receive Date: 20080327
  Receipt Date: 20080318
  Transmission Date: 20080703
  Serious: Yes (Hospitalization)
  Sender: FDA-Public Use
  Company Number: GB-ELI_LILLY_AND_COMPANY-GB200803004692

PATIENT
  Age: 77 Year
  Sex: Male

DRUGS (5)
  1. CEFACLOR [Suspect]
     Indication: LOWER RESPIRATORY TRACT INFECTION
     Dosage: 375 MG, DAILY (1/D)
     Route: 048
     Dates: start: 20080131, end: 20080201
  2. ASPIRIN [Concomitant]
     Indication: ANGINA PECTORIS
     Dosage: 75 MG, UNKNOWN
     Route: 065
  3. CLOPIDOGREL [Concomitant]
     Indication: ANGINA PECTORIS
     Dosage: 75 MG, DAILY (1/D)
     Route: 048
  4. RAMIPRIL [Concomitant]
     Indication: ANGINA PECTORIS
     Dosage: 5 MG, UNKNOWN
     Route: 048
  5. SIMVASTATIN [Concomitant]
     Dosage: 40 MG, UNKNOWN
     Route: 048

REACTIONS (3)
  - DYSPNOEA [None]
  - ERYTHEMA [None]
  - HYPERHIDROSIS [None]
